FAERS Safety Report 6651825-3 (Version None)
Quarter: 2010Q1

REPORT INFORMATION
  Report Type: 
  Country: None (occurrence: None)
  Receive Date: 20100325
  Receipt Date: 20100315
  Transmission Date: 20100710
  Serious: Yes (Life-Threatening, Other)
  Sender: FDA-Public Use
  Company Number: US-PFIZER INC-2010011262

PATIENT
  Sex: Male
  Weight: 114 kg

DRUGS (5)
  1. DILANTIN-125 [Suspect]
     Indication: CONVULSION
     Dosage: 600 MG, 1X/DAY
     Dates: start: 19770101
  2. GABAPENTIN [Suspect]
     Indication: CONVULSION
     Dosage: 900 MG, 1X/DAY
     Dates: start: 19981101, end: 19990101
  3. LAMOTRIGINE [Suspect]
     Indication: CONVULSION
     Dosage: 300 MG, 1X/DAY
     Dates: start: 19981101, end: 19990101
  4. LAMOTRIGINE [Suspect]
     Route: 048
     Dates: start: 19981101, end: 19990101
  5. IBUPROFEN [Concomitant]
     Indication: NEURALGIA
     Dosage: 1800 MG, 1X/DAY

REACTIONS (10)
  - ARTHRITIS [None]
  - BLOOD PRESSURE INCREASED [None]
  - CONVULSION [None]
  - DRUG INEFFECTIVE [None]
  - HEMIPLEGIA [None]
  - MYOCARDIAL INFARCTION [None]
  - NERVE INJURY [None]
  - PANIC ATTACK [None]
  - RASH [None]
  - TACHYCARDIA [None]
